FAERS Safety Report 10483268 (Version 1)
Quarter: 2014Q3

REPORT INFORMATION
  Report Type: Report from Study
  Country: DE (occurrence: DE)
  Receive Date: 20140930
  Receipt Date: 20140930
  Transmission Date: 20150326
  Serious: Yes (Hospitalization)
  Sender: FDA-Public Use
  Company Number: DE-SHIRE-DE201406299

PATIENT
  Age: 4 Year
  Sex: Male

DRUGS (3)
  1. IDURSULFASE [Suspect]
     Active Substance: IDURSULFASE
     Dosage: 0.71 MG/KG, 1X/WEEK
     Route: 041
     Dates: start: 20130322
  2. IDURSULFASE [Suspect]
     Active Substance: IDURSULFASE
     Indication: MUCOPOLYSACCHARIDOSIS II
     Dosage: 0.81 MG/KG, 1X/WEEK
     Route: 041
     Dates: start: 20110801
  3. IDURSULFASE [Suspect]
     Active Substance: IDURSULFASE
     Dosage: 0.61 MG/KG, 1X/WEEK
     Route: 041
     Dates: start: 20120620

REACTIONS (1)
  - Rhinorrhoea [Recovered/Resolved]

NARRATIVE: CASE EVENT DATE: 201309
